FAERS Safety Report 7750423-8 (Version None)
Quarter: 2011Q3

REPORT INFORMATION
  Report Type: 
  Country: None (occurrence: None)
  Receive Date: 20110914
  Receipt Date: 20110908
  Transmission Date: 20111222
  Serious: Yes (Other)
  Sender: FDA-Public Use
  Company Number: US-AMGEN-USASP2011046119

PATIENT
  Age: 62 Year
  Sex: Female

DRUGS (3)
  1. ENBREL [Suspect]
     Indication: RHEUMATOID ARTHRITIS
     Dosage: 50 MG, QWK
     Dates: start: 20020101, end: 20110101
  2. ORENCIA [Concomitant]
  3. HUMIRA [Concomitant]

REACTIONS (9)
  - NIGHT SWEATS [None]
  - CONFUSIONAL STATE [None]
  - RHEUMATOID ARTHRITIS [None]
  - HEADACHE [None]
  - MYELODYSPLASTIC SYNDROME [None]
  - GASTROINTESTINAL DISORDER [None]
  - WEIGHT INCREASED [None]
  - COUGH [None]
  - DRUG INEFFECTIVE [None]
